FAERS Safety Report 17489070 (Version 1)
Quarter: 2020Q1

REPORT INFORMATION
  Report Type: Report from Study
  Country: IT (occurrence: IT)
  Receive Date: 20200303
  Receipt Date: 20200303
  Transmission Date: 20200409
  Serious: Yes (Other)
  Sender: FDA-Public Use
  Company Number: IT-BAXTER-2020BAX004879

PATIENT
  Age: 52 Year
  Sex: Female

DRUGS (2)
  1. CISPLATIN. [Suspect]
     Active Substance: CISPLATIN
     Indication: ENDOMETRIAL CANCER
     Route: 065
  2. DOXIL [Suspect]
     Active Substance: DOXORUBICIN HYDROCHLORIDE
     Indication: ENDOMETRIAL CANCER
     Route: 065

REACTIONS (2)
  - Leukopenia [Unknown]
  - Thrombocytopenia [Unknown]
